FAERS Safety Report 5375630-3 (Version None)
Quarter: 2007Q2

REPORT INFORMATION
  Report Type: 
  Country: None (occurrence: None)
  Receive Date: 20070629
  Receipt Date: 20070626
  Transmission Date: 20071010
  Serious: Yes (Hospitalization, Other)
  Sender: FDA-Public Use
  Company Number: US-MERCK-0704USA03630

PATIENT
  Sex: Female

DRUGS (1)
  1. JANUVIA [Suspect]
     Indication: DIABETES MELLITUS NON-INSULIN-DEPENDENT
     Route: 048

REACTIONS (2)
  - ADVERSE EVENT [None]
  - RENAL FAILURE [None]
